FAERS Safety Report 6827565-4 (Version None)
Quarter: 2010Q3

REPORT INFORMATION
  Report Type: 
  Country: None (occurrence: None)
  Receive Date: 20100709
  Receipt Date: 20070122
  Transmission Date: 20110219
  Serious: No
  Sender: FDA-Public Use
  Company Number: US-PFIZER INC-2007006868

PATIENT
  Sex: Female
  Weight: 62.6 kg

DRUGS (6)
  1. CHANTIX [Suspect]
     Indication: SMOKING CESSATION THERAPY
     Dates: start: 20070116
  2. MAGNESIUM OXIDE [Interacting]
     Dates: end: 20070101
  3. MONTELUKAST [Concomitant]
     Indication: ASTHMA
  4. LIPITOR [Concomitant]
     Indication: BLOOD CHOLESTEROL INCREASED
  5. COZAAR [Concomitant]
     Indication: HYPERTENSION
  6. ESTRACE [Concomitant]

REACTIONS (5)
  - DIARRHOEA [None]
  - DRUG INTERACTION [None]
  - FAECES DISCOLOURED [None]
  - HEADACHE [None]
  - NAUSEA [None]
